FAERS Safety Report 11987644 (Version 1)
Quarter: 2016Q1

REPORT INFORMATION
  Report Type: Spontaneous
  Country: TR (occurrence: TR)
  Receive Date: 20160202
  Receipt Date: 20160202
  Transmission Date: 20160526
  Serious: Yes (Life-Threatening, Hospitalization, Other)
  Sender: FDA-Public Use
  Company Number: TR-ACCORD-037404

PATIENT
  Age: 9 Year
  Sex: Female

DRUGS (6)
  1. TACROLIMUS. [Suspect]
     Active Substance: TACROLIMUS
     Indication: LIVER TRANSPLANT
     Dosage: IN 1ST WEEK 1 MG THEN INCRESED  IN 2ND WEEK 3 MG THEN EVENTUALLY WITHDRAWN.
  2. METHYLPREDNISOLONE. [Concomitant]
     Active Substance: METHYLPREDNISOLONE
     Dosage: 1 GR/DAY (3 TIMES) 1ST WEEK
  3. ETOPOSIDE. [Suspect]
     Active Substance: ETOPOSIDE
     Indication: PRODUCT USED FOR UNKNOWN INDICATION
     Dosage: 150 MG/M2 (3 TIMES) 2ND WEEK
  4. PREDNISOLONE. [Concomitant]
     Active Substance: PREDNISOLONE
     Dosage: 2 MG/KG/DAY (AFTER MP) 1ST WEEK
  5. CICLOSPORIN [Concomitant]
     Active Substance: CYCLOSPORINE
     Indication: PRODUCT USED FOR UNKNOWN INDICATION
     Dosage: 5 MG/KG/DAY
  6. DEXAMETHASONE. [Concomitant]
     Active Substance: DEXAMETHASONE
     Dosage: 10 MG/M2/DAY 2ND WEEK

REACTIONS (3)
  - Histiocytosis haematophagic [Recovered/Resolved]
  - Juvenile idiopathic arthritis [Recovered/Resolved]
  - Toxicity to various agents [Recovered/Resolved]
